FAERS Safety Report 25282598 (Version 1)
Quarter: 2025Q2

REPORT INFORMATION
  Report Type: Spontaneous
  Country: US (occurrence: None)
  Receive Date: 20250507
  Receipt Date: 20250507
  Transmission Date: 20250717
  Serious: Yes (Hospitalization)
  Sender: FDA-CTU
  Company Number: None

PATIENT
  Age: 47 Year
  Sex: Female

DRUGS (1)
  1. RINVOQ [Suspect]
     Active Substance: UPADACITINIB
     Indication: Rheumatoid arthritis
     Dosage: FREQUENCY : DAILY;?

REACTIONS (7)
  - Infection [None]
  - Condition aggravated [None]
  - Herpes simplex [None]
  - Pneumonia [None]
  - Urinary tract infection [None]
  - Infection [None]
  - Back pain [None]
